FAERS Safety Report 15010694 (Version 1)
Quarter: 2018Q2

REPORT INFORMATION
  Report Type: Spontaneous
  Country: US (occurrence: US)
  Receive Date: 20180614
  Receipt Date: 20180614
  Transmission Date: 20180711
  Serious: No
  Sender: FDA-Public Use
  Company Number: US-PERRIGO-18US003413

PATIENT
  Age: 87 Year
  Sex: Female
  Weight: 78.5 kg

DRUGS (8)
  1. XELODA [Suspect]
     Active Substance: CAPECITABINE
     Indication: COLON CANCER STAGE III
     Dosage: 1800 MG, BID
     Route: 048
     Dates: start: 201801, end: 201802
  2. XELODA [Suspect]
     Active Substance: CAPECITABINE
     Dosage: 1800 MG, BID
     Route: 048
     Dates: start: 20180222, end: 20180307
  3. CHEMOTHERAPEUTICS [Suspect]
     Active Substance: UNSPECIFIED INGREDIENT
     Indication: COLON CANCER STAGE III
     Dosage: UNKNOWN, SINGLE
     Route: 042
     Dates: start: 201801, end: 201801
  4. LOPERAMIDE HYDROCHLORIDE. [Suspect]
     Active Substance: LOPERAMIDE HYDROCHLORIDE
     Indication: DIARRHOEA
     Dosage: 4 MG, QD
     Route: 048
     Dates: start: 20180308, end: 20180309
  5. LEXAPRO [Concomitant]
     Active Substance: ESCITALOPRAM OXALATE
     Indication: PRODUCT USED FOR UNKNOWN INDICATION
     Dosage: UNK
     Route: 065
  6. LOSARTAN. [Concomitant]
     Active Substance: LOSARTAN
     Indication: HYPERTENSION
     Dosage: UNK
     Route: 065
  7. CHEMOTHERAPEUTICS [Suspect]
     Active Substance: UNSPECIFIED INGREDIENT
     Dosage: UNKNOWN, SINGLE
     Route: 042
     Dates: start: 20180222, end: 20180222
  8. LOPERAMIDE HYDROCHLORIDE. [Suspect]
     Active Substance: LOPERAMIDE HYDROCHLORIDE
     Dosage: 2 MG, SINGLE
     Route: 048
     Dates: start: 20180312, end: 20180312

REACTIONS (2)
  - Intentional product use issue [Recovered/Resolved]
  - Rash [Not Recovered/Not Resolved]

NARRATIVE: CASE EVENT DATE: 20180308
